FAERS Safety Report 12118932 (Version 1)
Quarter: 2016Q1

REPORT INFORMATION
  Report Type: Spontaneous
  Country: US (occurrence: None)
  Receive Date: 20160225
  Receipt Date: 20160225
  Transmission Date: 20160526
  Serious: Yes (Life-Threatening, Other)
  Sender: FDA-Public Use
  Company Number: None

PATIENT
  Age: 30 Year
  Sex: Male
  Weight: 102.06 kg

DRUGS (4)
  1. PROLIXIN [Suspect]
     Active Substance: FLUPHENAZINE HYDROCHLORIDE
     Route: 030
  2. LITHIUM. [Concomitant]
     Active Substance: LITHIUM
  3. FLUPHENAZINE [Concomitant]
     Active Substance: FLUPHENAZINE
  4. COGENTIN [Concomitant]
     Active Substance: BENZTROPINE MESYLATE

REACTIONS (4)
  - Insomnia [None]
  - Apparent death [None]
  - Tremor [None]
  - Adverse drug reaction [None]

NARRATIVE: CASE EVENT DATE: 20150813
